FAERS Safety Report 15815422 (Version 5)
Quarter: 2019Q4

REPORT INFORMATION
  Report Type: Report from Study
  Country: US (occurrence: US)
  Receive Date: 20190112
  Receipt Date: 20191204
  Transmission Date: 20200122
  Serious: Yes (Hospitalization)
  Sender: FDA-Public Use
  Company Number: PHEH2019US001539

PATIENT
  Sex: Male

DRUGS (1)
  1. ENTRESTO [Suspect]
     Active Substance: SACUBITRIL\VALSARTAN
     Indication: CARDIAC FAILURE
     Dosage: UNK UNK, BID
     Route: 048

REACTIONS (8)
  - Drug ineffective [Unknown]
  - Fluid retention [Unknown]
  - Dizziness [Unknown]
  - Tremor [Unknown]
  - Fatigue [Unknown]
  - Peripheral swelling [Unknown]
  - Dyspnoea [Unknown]
  - Head discomfort [Unknown]
